FAERS Safety Report 18051502 (Version 2)
Quarter: 2020Q3

REPORT INFORMATION
  Report Type: Report from Study
  Country: US (occurrence: US)
  Receive Date: 20200721
  Receipt Date: 20200807
  Transmission Date: 20201103
  Serious: Yes (Death, Hospitalization)
  Sender: FDA-Public Use
  Company Number: US-ACTELION-A-NJ2020-201993

PATIENT
  Age: 14 Year
  Sex: Female

DRUGS (6)
  1. MYFORTIC [Concomitant]
     Active Substance: MYCOPHENOLATE SODIUM
     Dosage: 360 UNK, BID
     Dates: end: 20200616
  2. ALBUTEROL HFA [Concomitant]
     Active Substance: ALBUTEROL SULFATE
     Dosage: UNK
     Dates: end: 20200616
  3. PREDNISONE. [Concomitant]
     Active Substance: PREDNISONE
     Dosage: 25 MG, QD
     Route: 048
     Dates: end: 20200616
  4. OPSUMIT [Suspect]
     Active Substance: MACITENTAN
     Indication: PULMONARY ARTERIAL HYPERTENSION
     Dosage: 10 MG, QD
     Route: 048
     Dates: start: 20190130, end: 20200616
  5. TADALAFIL. [Concomitant]
     Active Substance: TADALAFIL
     Indication: PULMONARY ARTERIAL HYPERTENSION
     Dosage: 20 MG, QD
     Route: 048
     Dates: end: 20200616
  6. NAPROXEN. [Concomitant]
     Active Substance: NAPROXEN
     Dosage: 500 MG, PRN
     Dates: end: 20200616

REACTIONS (20)
  - Hypoglycaemia [Unknown]
  - Hypernatraemia [Unknown]
  - Ventricular fibrillation [Unknown]
  - Cardiac arrest [Fatal]
  - Renal failure [Fatal]
  - Chills [Unknown]
  - Nausea [Unknown]
  - Pyrexia [Unknown]
  - Brain death [Fatal]
  - Haemodynamic instability [Unknown]
  - Subdural haemorrhage [Unknown]
  - Gastrointestinal haemorrhage [Unknown]
  - Ventricular tachycardia [Unknown]
  - Hepatic failure [Fatal]
  - Brain injury [Fatal]
  - Abdominal pain [Unknown]
  - Metabolic acidosis [Unknown]
  - Hyperhidrosis [Unknown]
  - Multiple organ dysfunction syndrome [Fatal]
  - Respiratory alkalosis [Unknown]

NARRATIVE: CASE EVENT DATE: 20200608
